FAERS Safety Report 8168605-2 (Version None)
Quarter: 2012Q1

REPORT INFORMATION
  Report Type: 
  Country: None (occurrence: None)
  Receive Date: 20120222
  Receipt Date: 20120210
  Transmission Date: 20120608
  Serious: Yes (Hospitalization, Other)
  Sender: FDA-Public Use
  Company Number: 2012MA002058

PATIENT
  Age: 68 Year
  Sex: Female

DRUGS (5)
  1. ASPIRIN [Suspect]
     Dosage: 75 MG;PO
     Route: 048
  2. CLOZARIL [Suspect]
     Indication: SCHIZOPHRENIA
     Dosage: 100 MG;QAM;PO
     Route: 048
     Dates: start: 20000724
  3. FERROUS SULFATE TAB [Suspect]
     Dosage: PO
     Route: 048
  4. LITHIUM CARBONATE [Concomitant]
  5. VENLAFAXINE HCL [Suspect]
     Dosage: 150 MG;PO
     Route: 048

REACTIONS (3)
  - AGITATION [None]
  - LOWER RESPIRATORY TRACT INFECTION [None]
  - GASTRIC ULCER [None]
